FAERS Safety Report 5357530-8 (Version None)
Quarter: 2007Q2

REPORT INFORMATION
  Report Type: 
  Country: None (occurrence: None)
  Receive Date: 20070614
  Receipt Date: 20070601
  Transmission Date: 20071010
  Serious: Yes (Other)
  Sender: FDA-Public Use
  Company Number: US-ELI_LILLY_AND_COMPANY-US200706000862

PATIENT
  Age: 42 Year
  Sex: Male

DRUGS (1)
  1. CYMBALTA [Suspect]

REACTIONS (5)
  - AGGRESSION [None]
  - CHILD ABUSE [None]
  - COGNITIVE DISORDER [None]
  - HALLUCINATION [None]
  - PHYSICAL ASSAULT [None]
